FAERS Safety Report 23714389 (Version 1)
Quarter: 2024Q2

REPORT INFORMATION
  Report Type: Report from Study
  Country: NL (occurrence: NL)
  Receive Date: 20240406
  Receipt Date: 20240406
  Transmission Date: 20240716
  Serious: Yes (Other)
  Sender: FDA-Public Use
  Company Number: NL-ABBVIE-5707193

PATIENT
  Sex: Male

DRUGS (2)
  1. CARBIDOPA\LEVODOPA [Suspect]
     Active Substance: CARBIDOPA\LEVODOPA
     Indication: Parkinson^s disease
     Dosage: MD 11.5 ML; CD 2.8 ML/H; ED 2.0 ML
     Route: 050
     Dates: start: 20240326
  2. CARBIDOPA\LEVODOPA [Suspect]
     Active Substance: CARBIDOPA\LEVODOPA
     Route: 050
     Dates: start: 20221101

REACTIONS (14)
  - Postoperative wound infection [Not Recovered/Not Resolved]
  - Hypophagia [Not Recovered/Not Resolved]
  - Weight decreased [Not Recovered/Not Resolved]
  - Bedridden [Not Recovered/Not Resolved]
  - Loss of personal independence in daily activities [Not Recovered/Not Resolved]
  - Hallucination [Not Recovered/Not Resolved]
  - Fibroma [Not Recovered/Not Resolved]
  - Food refusal [Not Recovered/Not Resolved]
  - Device dislocation [Not Recovered/Not Resolved]
  - Neck surgery [Not Recovered/Not Resolved]
  - Disturbance in attention [Not Recovered/Not Resolved]
  - Delusion [Not Recovered/Not Resolved]
  - Posture abnormal [Not Recovered/Not Resolved]
  - Off label use [Not Recovered/Not Resolved]
